FAERS Safety Report 20764272 (Version 1)
Quarter: 2022Q2

REPORT INFORMATION
  Report Type: Spontaneous
  Country: US (occurrence: US)
  Receive Date: 20220428
  Receipt Date: 20220428
  Transmission Date: 20220721
  Serious: No
  Sender: FDA-Public Use
  Company Number: US-PFIZER INC-202100963621

PATIENT
  Age: 14 Year
  Sex: Male

DRUGS (1)
  1. NORPACE CR [Suspect]
     Active Substance: DISOPYRAMIDE PHOSPHATE
     Dosage: UNK, 4X/DAY (EVERY 6 HOURS)

REACTIONS (2)
  - Somnolence [Unknown]
  - Product dose omission issue [Unknown]
